FAERS Safety Report 5840273-1 (Version None)
Quarter: 2008Q3

REPORT INFORMATION
  Report Type: 
  Country: None (occurrence: None)
  Receive Date: 20080807
  Receipt Date: 20080807
  Transmission Date: 20090109
  Serious: No
  Sender: FDA-Public Use
  Company Number: None

PATIENT
  Sex: Female
  Weight: 90.7194 kg

DRUGS (2)
  1. EFFEXOR XR [Suspect]
     Indication: BIPOLAR DISORDER
     Dosage: 150MG  1XDAILY PO
     Route: 048
     Dates: start: 20030101, end: 20080808
  2. EFFEXOR XR [Suspect]
     Indication: FIBROMYALGIA
     Dosage: 150MG  1XDAILY PO
     Route: 048
     Dates: start: 20030101, end: 20080808

REACTIONS (1)
  - DRUG SCREEN POSITIVE [None]
